FAERS Safety Report 7060423-1 (Version None)
Quarter: 2010Q4

REPORT INFORMATION
  Report Type: 
  Country: None (occurrence: None)
  Receive Date: 20101025
  Receipt Date: 20101013
  Transmission Date: 20110411
  Serious: Yes (Hospitalization)
  Sender: FDA-Public Use
  Company Number: FR-ROCHE-721713

PATIENT
  Age: 70 Year
  Sex: Male

DRUGS (2)
  1. VALIUM [Suspect]
     Indication: PRODUCT USED FOR UNKNOWN INDICATION
     Dosage: DOSING AMOUNT: 10 MG
     Route: 048
     Dates: start: 20100628, end: 20100628
  2. TIAPRIDAL [Suspect]
     Indication: PRODUCT USED FOR UNKNOWN INDICATION
     Dosage: DOSING AMOUNT: 50 MG
     Route: 048
     Dates: start: 20100628, end: 20100628

REACTIONS (2)
  - ADVERSE REACTION [None]
  - SOMNOLENCE [None]
